FAERS Safety Report 9486831 (Version 2)
Quarter: 2013Q3

REPORT INFORMATION
  Report Type: Spontaneous
  Country: US (occurrence: US)
  Receive Date: 20130829
  Receipt Date: 20130925
  Transmission Date: 20140515
  Serious: Yes (Other)
  Sender: FDA-Public Use
  Company Number: US-GILEAD-2013-0082277

PATIENT
  Age: 36 Year
  Sex: Male

DRUGS (3)
  1. LETAIRIS [Suspect]
     Indication: PULMONARY ARTERIAL HYPERTENSION
     Dosage: 10 MG, QD
     Dates: start: 20110628
  2. REMODULIN [Concomitant]
     Indication: PULMONARY HYPERTENSION
  3. ADCIRCA [Concomitant]
     Indication: PULMONARY HYPERTENSION
     Dates: end: 20130827

REACTIONS (1)
  - Pulmonary arterial hypertension [Unknown]
